FAERS Safety Report 18531049 (Version 1)
Quarter: 2020Q4

REPORT INFORMATION
  Report Type: Spontaneous
  Country: GB (occurrence: GB)
  Receive Date: 20201122
  Receipt Date: 20201122
  Transmission Date: 20210114
  Serious: Yes (Other)
  Sender: FDA-Public Use
  Company Number: GB-JNJFOC-20201130915

PATIENT
  Age: 35 Year
  Sex: Female

DRUGS (3)
  1. ROMIPLOSTIM [Suspect]
     Active Substance: ROMIPLOSTIM
     Route: 065
  2. XARELTO [Suspect]
     Active Substance: RIVAROXABAN
     Indication: THROMBOPHLEBITIS SUPERFICIAL
     Route: 048
  3. ACETYLSALICYLIC ACID [Suspect]
     Active Substance: ASPIRIN
     Indication: THROMBOPHLEBITIS SUPERFICIAL
     Route: 065

REACTIONS (8)
  - Paroxysmal nocturnal haemoglobinuria [Unknown]
  - Retinal haemorrhage [Unknown]
  - Melaena [Unknown]
  - Product use in unapproved indication [Unknown]
  - Menorrhagia [Unknown]
  - Macular oedema [Unknown]
  - Off label use [Unknown]
  - Purpura [Unknown]
